FAERS Safety Report 7356505-7 (Version None)
Quarter: 2011Q1

REPORT INFORMATION
  Report Type: 
  Country: None (occurrence: None)
  Receive Date: 20110316
  Receipt Date: 20110302
  Transmission Date: 20110831
  Serious: Yes (Other)
  Sender: FDA-Public Use
  Company Number: PHHY2011FR18048

PATIENT
  Age: 63 Year
  Sex: Female

DRUGS (1)
  1. ACLASTA [Suspect]
     Indication: OSTEITIS DEFORMANS

REACTIONS (4)
  - PERIORBITAL CELLULITIS [None]
  - VISUAL ACUITY REDUCED [None]
  - EYE PAIN [None]
  - EYE OEDEMA [None]
